FAERS Safety Report 16457668 (Version 1)
Quarter: 2019Q3

REPORT INFORMATION
  Report Type: Spontaneous
  Country: US (occurrence: US)
  Receive Date: 20190619
  Receipt Date: 20190619
  Transmission Date: 20191004
  Serious: Yes (Hospitalization)
  Sender: FDA-Public Use
  Company Number: None

PATIENT
  Age: 51 Year
  Sex: Female

DRUGS (4)
  1. ATORVASTATIN [Suspect]
     Active Substance: ATORVASTATIN
  2. ESTRADIOL. [Suspect]
     Active Substance: ESTRADIOL
  3. SAXENDA [Suspect]
     Active Substance: LIRAGLUTIDE
     Indication: WEIGHT DECREASED
     Route: 058
     Dates: start: 20190524
  4. CLOTRIMAZOLE. [Suspect]
     Active Substance: CLOTRIMAZOLE

REACTIONS (1)
  - Hernia [None]

NARRATIVE: CASE EVENT DATE: 20190618
